FAERS Safety Report 21548818 (Version 1)
Quarter: 2022Q4

REPORT INFORMATION
  Report Type: Spontaneous
  Country: LU (occurrence: LU)
  Receive Date: 20221103
  Receipt Date: 20221103
  Transmission Date: 20230113
  Serious: Yes (Hospitalization)
  Sender: FDA-Public Use
  Company Number: None

PATIENT
  Weight: 3.2 kg

DRUGS (4)
  1. SEVOFLURANE [Suspect]
     Active Substance: SEVOFLURANE
     Indication: General anaesthesia
     Route: 055
     Dates: start: 199912
  2. MARCAINE [Suspect]
     Active Substance: BUPIVACAINE HYDROCHLORIDE
     Indication: Spinal anaesthesia
     Dosage: 0.25 PERCENT
     Route: 037
     Dates: start: 199912
  3. NITROUS OXIDE [Suspect]
     Active Substance: NITROUS OXIDE
     Indication: General anaesthesia
     Dosage: INHALATION VAPOUR
     Route: 065
     Dates: start: 199912
  4. MIVACRON [Suspect]
     Active Substance: MIVACURIUM CHLORIDE
     Indication: Spinal anaesthesia
     Dosage: TIME INTERVAL: 1 TOTAL: 10 MG/5 ML
     Route: 037
     Dates: start: 199912

REACTIONS (2)
  - Acute kidney injury [Unknown]
  - Hypoxia [Unknown]

NARRATIVE: CASE EVENT DATE: 19991201
